FAERS Safety Report 19983925 (Version 2)
Quarter: 2021Q4

REPORT INFORMATION
  Report Type: Report from Study
  Country: FR (occurrence: FR)
  Receive Date: 20211021
  Receipt Date: 20211022
  Transmission Date: 20220303
  Serious: Yes (Disabling)
  Sender: FDA-Public Use
  Company Number: FR-BAXTER-2021BAX013451

PATIENT
  Age: 72 Year
  Sex: Female
  Weight: 63 kg

DRUGS (23)
  1. VINCRISTINE SULFATE [Suspect]
     Active Substance: VINCRISTINE SULFATE
     Indication: Product used for unknown indication
     Dosage: ON DAY 15, 2 MG
     Route: 065
     Dates: start: 20201208, end: 20201208
  2. VINCRISTINE SULFATE [Suspect]
     Active Substance: VINCRISTINE SULFATE
     Dosage: ON DAY 1, 2 MG
     Route: 065
     Dates: start: 20201124, end: 20201124
  3. VINCRISTINE SULFATE [Suspect]
     Active Substance: VINCRISTINE SULFATE
     Dosage: ON DAY 8, 2 MG
     Route: 065
     Dates: start: 20201201, end: 20201201
  4. VINCRISTINE SULFATE [Suspect]
     Active Substance: VINCRISTINE SULFATE
     Dosage: ON DAY 22, 2 MG
     Route: 065
     Dates: start: 20201215, end: 20201215
  5. METHOTREXATE [Suspect]
     Active Substance: METHOTREXATE
     Indication: Product used for unknown indication
     Dosage: ON DAY 2, 15 MG
     Route: 037
     Dates: start: 20201125, end: 20201125
  6. METHOTREXATE [Suspect]
     Active Substance: METHOTREXATE
     Dosage: ON DAY 2, 15 MG
     Route: 037
     Dates: start: 20201223, end: 20201223
  7. CYTARABINE [Suspect]
     Active Substance: CYTARABINE
     Indication: Product used for unknown indication
     Dosage: ON DAY 2, 40 MG
     Route: 065
     Dates: start: 20201125, end: 20201125
  8. CYTARABINE [Suspect]
     Active Substance: CYTARABINE
     Dosage: ON DAY 2, 40 MG
     Route: 065
     Dates: start: 20201223, end: 20201223
  9. INOTUZUMAB OZOGAMICIN [Suspect]
     Active Substance: INOTUZUMAB OZOGAMICIN
     Indication: Product used for unknown indication
     Dosage: ON DAY 1, 1.31 MG
     Route: 065
     Dates: start: 20201124, end: 20201124
  10. INOTUZUMAB OZOGAMICIN [Suspect]
     Active Substance: INOTUZUMAB OZOGAMICIN
     Dosage: ON DAY 8, 0.83 MG
     Route: 065
     Dates: start: 20201201, end: 20201201
  11. INOTUZUMAB OZOGAMICIN [Suspect]
     Active Substance: INOTUZUMAB OZOGAMICIN
     Dosage: ON DAY 8, 0.83 MG
     Route: 065
     Dates: start: 20201229, end: 20201229
  12. INOTUZUMAB OZOGAMICIN [Suspect]
     Active Substance: INOTUZUMAB OZOGAMICIN
     Dosage: ON DAY 1, 0.83 MG
     Route: 065
     Dates: start: 20201222, end: 20201222
  13. INOTUZUMAB OZOGAMICIN [Suspect]
     Active Substance: INOTUZUMAB OZOGAMICIN
     Dosage: ON DAY 15, 0.83 MG
     Route: 065
     Dates: start: 20201208, end: 20201208
  14. CYCLOPHOSPHAMIDE [Suspect]
     Active Substance: CYCLOPHOSPHAMIDE
     Indication: Product used for unknown indication
     Dosage: ON DAY 2, 495 MG
     Route: 065
     Dates: start: 20201223, end: 20201223
  15. CYCLOPHOSPHAMIDE [Suspect]
     Active Substance: CYCLOPHOSPHAMIDE
     Dosage: ON DAY 3, 495 MG
     Route: 065
     Dates: start: 20201224, end: 20201224
  16. CYCLOPHOSPHAMIDE [Suspect]
     Active Substance: CYCLOPHOSPHAMIDE
     Dosage: ON DAY 1, 495 MG
     Route: 065
     Dates: start: 20201222, end: 20201222
  17. CYCLOPHOSPHAMIDE [Concomitant]
     Active Substance: CYCLOPHOSPHAMIDE
     Dates: start: 20201223, end: 20201223
  18. CYCLOPHOSPHAMIDE [Concomitant]
     Active Substance: CYCLOPHOSPHAMIDE
     Dosage: 495 MG
     Dates: start: 20201224, end: 20201224
  19. CYCLOPHOSPHAMIDE [Concomitant]
     Active Substance: CYCLOPHOSPHAMIDE
     Dosage: 495 MG
     Dates: start: 20201222, end: 20201222
  20. FILGRASTIM [Concomitant]
     Active Substance: FILGRASTIM
     Indication: Product used for unknown indication
     Dosage: UNK
     Route: 065
     Dates: start: 20201230, end: 20210101
  21. LEUCOVORIN CALCIUM [Concomitant]
     Active Substance: LEUCOVORIN CALCIUM
     Indication: Product used for unknown indication
     Dosage: UNK
     Route: 065
     Dates: start: 20201125
  22. VALACYCLOVIR HYDROCHLORIDE [Concomitant]
     Active Substance: VALACYCLOVIR HYDROCHLORIDE
     Indication: Product used for unknown indication
     Dosage: UNK
     Route: 065
     Dates: start: 20201125
  23. BACTRIM [Concomitant]
     Active Substance: SULFAMETHOXAZOLE\TRIMETHOPRIM
     Indication: Product used for unknown indication
     Route: 065
     Dates: start: 20201125

REACTIONS (1)
  - Neuropathy peripheral [Not Recovered/Not Resolved]

NARRATIVE: CASE EVENT DATE: 20201229
